FAERS Safety Report 8346390-9 (Version None)
Quarter: 2012Q2

REPORT INFORMATION
  Report Type: 
  Country: None (occurrence: None)
  Receive Date: 20120507
  Receipt Date: 20120507
  Transmission Date: 20120825
  Serious: Yes (Death)
  Sender: FDA-Public Use
  Company Number: None

PATIENT
  Age: 78 Year
  Sex: Male
  Weight: 83 kg

DRUGS (1)
  1. CIALIS [Suspect]
     Indication: ERECTILE DYSFUNCTION
     Dosage: PO
     Route: 048

REACTIONS (4)
  - LOSS OF CONSCIOUSNESS [None]
  - APHASIA [None]
  - SPINAL COLUMN STENOSIS [None]
  - CEREBRAL HAEMORRHAGE [None]
